FAERS Safety Report 7947075-0 (Version None)
Quarter: 2011Q4

REPORT INFORMATION
  Report Type: 
  Country: None (occurrence: None)
  Receive Date: 20111129
  Receipt Date: 20111019
  Transmission Date: 20120403
  Serious: No
  Sender: FDA-Public Use
  Company Number: US-ASTRAZENECA-2011SE63238

PATIENT
  Sex: Female

DRUGS (5)
  1. TOPIRAMATE [Concomitant]
  2. SINGULAIR [Concomitant]
  3. VITAMIN E [Concomitant]
  4. VIMOVO [Suspect]
     Indication: DYSMENORRHOEA
     Dosage: 500 MG/20 MG, DAILY
     Route: 048
     Dates: start: 20111018
  5. BIRTH CONTROL PILLS [Concomitant]

REACTIONS (4)
  - CONTRAINDICATION TO MEDICAL TREATMENT [None]
  - CHEST PAIN [None]
  - OFF LABEL USE [None]
  - ASTHMA [None]
